FAERS Safety Report 4436876-1 (Version None)
Quarter: 2004Q3

REPORT INFORMATION
  Report Type: 
  Country: None (occurrence: None)
  Receive Date: 20040726
  Receipt Date: 20040322
  Transmission Date: 20050211
  Serious: No
  Sender: FDA-Public Use
  Company Number: USA040362723

PATIENT
  Age: 83 Year
  Sex: Female

DRUGS (4)
  1. FORTEO [Suspect]
     Dates: start: 20040101
  2. PREVACID [Concomitant]
  3. ZESTRIL [Concomitant]
  4. MULTIVITAMIN [Concomitant]

REACTIONS (1)
  - INJECTION SITE DISCOLOURATION [None]
